FAERS Safety Report 13024965 (Version 1)
Quarter: 2016Q4

REPORT INFORMATION
  Report Type: Spontaneous
  Country: CN (occurrence: CN)
  Receive Date: 20161213
  Receipt Date: 20161213
  Transmission Date: 20170207
  Serious: Yes (Other)
  Sender: FDA-Public Use
  Company Number: CN-ASTRAZENECA-2016SF31289

PATIENT
  Sex: Female

DRUGS (9)
  1. CANDESARTAN CILEXETIL. [Suspect]
     Active Substance: CANDESARTAN CILEXETIL
     Indication: HYPERTENSION
     Route: 048
     Dates: start: 20160722, end: 20160722
  2. GLUCOSE INJECTION [Concomitant]
     Dosage: 10% GLUCOSE INJECTION 250ML+6 UNITS OF GENERAL INSULIN
     Route: 042
     Dates: start: 20160727
  3. GLUCOSE INJECTION [Concomitant]
     Dosage: 10% GLUCOSE INJECTION 250ML+6 UNITS OF GENERAL INSULIN
     Route: 042
  4. CANDESARTAN CILEXETIL. [Suspect]
     Active Substance: CANDESARTAN CILEXETIL
     Indication: HYPERTENSION
     Route: 048
  5. FUROSEMIDE. [Concomitant]
     Active Substance: FUROSEMIDE
     Indication: BLOOD POTASSIUM DECREASED
     Dosage: 10.0MG UNKNOWN
     Route: 065
  6. ROSUVASTATIN CALCIUM. [Suspect]
     Active Substance: ROSUVASTATIN CALCIUM
     Indication: DYSLIPIDAEMIA
     Route: 048
     Dates: start: 20160722, end: 20160725
  7. FUROSEMIDE. [Concomitant]
     Active Substance: FUROSEMIDE
     Indication: BLOOD POTASSIUM DECREASED
     Dosage: 20.0MG UNKNOWN
     Route: 065
  8. SIMVASTATIN. [Concomitant]
     Active Substance: SIMVASTATIN
     Indication: CORONARY ARTERY DISEASE
     Route: 048
  9. SIMVASTATIN. [Concomitant]
     Active Substance: SIMVASTATIN
     Indication: CEREBROVASCULAR ACCIDENT
     Route: 048

REACTIONS (3)
  - Intentional product misuse [Unknown]
  - Renal impairment [Recovering/Resolving]
  - Blood potassium increased [Recovering/Resolving]
